FAERS Safety Report 15675633 (Version 3)
Quarter: 2019Q1

REPORT INFORMATION
  Report Type: Report from Study
  Country: KR (occurrence: KR)
  Receive Date: 20181130
  Receipt Date: 20190123
  Transmission Date: 20190417
  Serious: Yes (Other)
  Sender: FDA-Public Use
  Company Number: KR-SA-2018SA281951

PATIENT
  Age: 83 Year
  Sex: Female

DRUGS (3)
  1. INSULIN GLARGINE/LIXISENATIDE [Suspect]
     Active Substance: INSULIN GLARGINE\LIXISENATIDE
     Dosage: 16 U, QD
     Route: 058
     Dates: start: 20181208
  2. INSULIN GLARGINE/LIXISENATIDE [Suspect]
     Active Substance: INSULIN GLARGINE\LIXISENATIDE
     Indication: DIABETES MELLITUS
     Dosage: 12 U, QD
     Route: 058
     Dates: start: 20181005, end: 20181023
  3. INSULIN GLARGINE/LIXISENATIDE [Suspect]
     Active Substance: INSULIN GLARGINE\LIXISENATIDE
     Dosage: 14 U, QD
     Route: 058
     Dates: start: 20181024, end: 2018

REACTIONS (12)
  - Muscle spasms [Not Recovered/Not Resolved]
  - Non-cardiac chest pain [Recovered/Resolved]
  - Gastrooesophageal reflux disease [Recovered/Resolved]
  - Hyperglycaemia [Not Recovered/Not Resolved]
  - Chest injury [Recovered/Resolved]
  - Fall [Unknown]
  - Dizziness postural [Recovered/Resolved]
  - Dyspepsia [Recovered/Resolved]
  - Blood glucose increased [Not Recovered/Not Resolved]
  - Fracture [Not Recovered/Not Resolved]
  - Blood glucose increased [Not Recovered/Not Resolved]
  - Injection site pain [Recovered/Resolved]

NARRATIVE: CASE EVENT DATE: 2018
